FAERS Safety Report 16769453 (Version 2)
Quarter: 2019Q4

REPORT INFORMATION
  Report Type: Spontaneous
  Country: US (occurrence: US)
  Receive Date: 20190903
  Receipt Date: 20191112
  Transmission Date: 20200122
  Serious: No
  Sender: FDA-Public Use
  Company Number: US-LEXICON PHARMACEUTICALS, INC-19-1606-00844

PATIENT
  Sex: Female

DRUGS (2)
  1. TELOTRISTAT ETHYL [Suspect]
     Active Substance: TELOTRISTAT ETHYL
     Indication: CARCINOID TUMOUR PULMONARY
     Route: 048
     Dates: start: 20190808
  2. SANDOSTATIN [Concomitant]
     Active Substance: OCTREOTIDE ACETATE

REACTIONS (7)
  - Gait disturbance [Unknown]
  - Fatigue [Unknown]
  - Flank pain [Recovered/Resolved]
  - Back pain [Unknown]
  - Dyspnoea [Unknown]
  - Chest discomfort [Unknown]
  - Headache [Unknown]

NARRATIVE: CASE EVENT DATE: 2019
